FAERS Safety Report 5137852-6 (Version None)
Quarter: 2006Q4

REPORT INFORMATION
  Report Type: 
  Country: None (occurrence: None)
  Receive Date: 20061030
  Receipt Date: 20060125
  Transmission Date: 20070319
  Serious: No
  Sender: FDA-Public Use
  Company Number: US-GLAXOSMITHKLINE-A0590917A

PATIENT
  Age: 43 Year
  Sex: Male
  Weight: 64.5 kg

DRUGS (3)
  1. ADVAIR HFA [Suspect]
     Indication: CHRONIC OBSTRUCTIVE PULMONARY DISEASE
     Dosage: 1PUFF TWICE PER DAY
     Route: 055
     Dates: start: 20060120
  2. LEVAQUIN [Concomitant]
  3. COMBIVENT [Concomitant]

REACTIONS (1)
  - SOMNOLENCE [None]
